FAERS Safety Report 6152359-5 (Version None)
Quarter: 2009Q2

REPORT INFORMATION
  Report Type: 
  Country: None (occurrence: None)
  Receive Date: 20090413
  Receipt Date: 20090406
  Transmission Date: 20091009
  Serious: Yes (Hospitalization)
  Sender: FDA-Public Use
  Company Number: US-JNJFOC-20081000177

PATIENT
  Sex: Female
  Weight: 53.98 kg

DRUGS (10)
  1. DURAGESIC-100 [Suspect]
     Indication: BACK PAIN
     Route: 062
  2. TRILEPTAL [Suspect]
     Indication: CONVULSION
     Dosage: BEGAN IN JAN-2004
     Route: 048
  3. HYDROCODONE BITARTRATE [Concomitant]
     Indication: PAIN
     Dosage: 10/500 /TABLET/10/500 4 IN 24 HOURS/ORAL
     Route: 062
  4. PREMARIN [Concomitant]
     Indication: HORMONE LEVEL ABNORMAL
     Route: 048
  5. SOMA [Concomitant]
     Indication: MUSCLE SPASMS
     Route: 048
  6. XANAX [Concomitant]
     Indication: ANXIETY
     Route: 048
  7. ANTIDEPRESSANTS [Concomitant]
     Indication: DEPRESSION
     Route: 048
  8. SINGULAIR [Concomitant]
     Indication: MULTIPLE ALLERGIES
  9. ASPIRIN [Concomitant]
     Route: 048
  10. NASONEX [Concomitant]
     Indication: MULTIPLE ALLERGIES
     Dosage: 2 SPRAYS IN 24 HOURS
     Route: 045

REACTIONS (9)
  - BLOOD POTASSIUM DECREASED [None]
  - BODY HEIGHT DECREASED [None]
  - CONVULSION [None]
  - DYSPNOEA [None]
  - HYPERSENSITIVITY [None]
  - INSOMNIA [None]
  - INTRACRANIAL ANEURYSM [None]
  - OSTEOARTHRITIS [None]
  - OSTEOPOROSIS [None]
